FAERS Safety Report 11411994 (Version 2)
Quarter: 2015Q3

REPORT INFORMATION
  Report Type: Spontaneous
  Country: US (occurrence: US)
  Receive Date: 20150821
  Receipt Date: 20150903
  Transmission Date: 20151125
  Serious: No
  Sender: FDA-Public Use
  Company Number: US-ELI_LILLY_AND_COMPANY-US201201001056

PATIENT
  Age: 50 Year
  Sex: Female

DRUGS (6)
  1. HUMULIN N [Suspect]
     Active Substance: INSULIN HUMAN
     Dosage: 14 U, OTHER
  2. HUMALOG [Suspect]
     Active Substance: INSULIN LISPRO
     Indication: TYPE 1 DIABETES MELLITUS
     Dosage: UNK, OTHER
  3. HUMULIN N [Suspect]
     Active Substance: INSULIN HUMAN
     Dosage: 14 U, OTHER
  4. HUMULIN N [Suspect]
     Active Substance: INSULIN HUMAN
     Dosage: 14 U, OTHER
  5. HUMULIN N [Suspect]
     Active Substance: INSULIN HUMAN
     Dosage: 14 U, OTHER
  6. HUMULIN N [Suspect]
     Active Substance: INSULIN HUMAN
     Indication: TYPE 1 DIABETES MELLITUS
     Dosage: 14 U, OTHER

REACTIONS (10)
  - Blood glucose decreased [Unknown]
  - Sleep disorder [Unknown]
  - Feeling abnormal [Unknown]
  - Asthenia [Unknown]
  - Gait disturbance [Unknown]
  - Drug ineffective [Unknown]
  - Malaise [Unknown]
  - Bronchitis [Unknown]
  - Blood glucose increased [Unknown]
  - Fatigue [Unknown]

NARRATIVE: CASE EVENT DATE: 201107
